FAERS Safety Report 19077337 (Version 1)
Quarter: 2021Q1

REPORT INFORMATION
  Report Type: Spontaneous
  Country: US (occurrence: US)
  Receive Date: 20210330
  Receipt Date: 20210330
  Transmission Date: 20210420
  Serious: Yes (Hospitalization)
  Sender: FDA-Public Use
  Company Number: None

PATIENT
  Age: 70 Year

DRUGS (2)
  1. FOLIC ACID?03/FEB/2021 [Concomitant]
  2. CIMZIA [Suspect]
     Active Substance: CERTOLIZUMAB PEGOL
     Indication: ESSENTIAL HYPERTENSION
     Dosage: ?          OTHER FREQUENCY:EVERY4WEEKS;?
     Route: 058

REACTIONS (1)
  - Spinal operation [None]

NARRATIVE: CASE EVENT DATE: 20201207
